FAERS Safety Report 23811254 (Version 1)
Quarter: 2024Q2

REPORT INFORMATION
  Report Type: Spontaneous
  Country: CA (occurrence: CA)
  Receive Date: 20240502
  Receipt Date: 20240502
  Transmission Date: 20240716
  Serious: Yes (Hospitalization, Other)
  Sender: FDA-Public Use
  Company Number: CA-ENDO PHARMACEUTICALS INC-2024-001937

PATIENT
  Age: 7 Decade
  Sex: Female

DRUGS (5)
  1. DIAZEPAM [Suspect]
     Active Substance: DIAZEPAM
     Indication: Anxiety
     Dosage: 5 MILLIGRAM, DAILY
     Route: 065
  2. DIAZEPAM [Suspect]
     Active Substance: DIAZEPAM
     Indication: Depression
  3. DULOXETINE HYDROCHLORIDE [Suspect]
     Active Substance: DULOXETINE HYDROCHLORIDE
     Indication: Depression
     Dosage: 60 MILLIGRAM, DAILY
     Route: 065
  4. DULOXETINE HYDROCHLORIDE [Suspect]
     Active Substance: DULOXETINE HYDROCHLORIDE
     Indication: Anxiety
  5. CANNABIS SATIVA SUBSP. INDICA TOP [Suspect]
     Active Substance: CANNABIS SATIVA SUBSP. INDICA TOP
     Indication: Product used for unknown indication
     Dosage: 3 DOSAGE FORM, UNKNOWN (3 PUFFS)
     Route: 065

REACTIONS (3)
  - Postictal psychosis [Recovered/Resolved]
  - Drug withdrawal convulsions [Recovered/Resolved]
  - Product dose omission issue [Unknown]
